FAERS Safety Report 25236252 (Version 1)
Quarter: 2025Q2

REPORT INFORMATION
  Report Type: Spontaneous
  Country: CN (occurrence: CN)
  Receive Date: 20250424
  Receipt Date: 20250424
  Transmission Date: 20250716
  Serious: Yes (Life-Threatening, Other)
  Sender: PFIZER
  Company Number: CN-PFIZER INC-PV202500047618

PATIENT
  Age: 82 Year
  Sex: Male

DRUGS (1)
  1. LINEZOLID [Suspect]
     Active Substance: LINEZOLID
     Indication: Pneumonia
     Dosage: 0.6 G, 2X/DAY
     Route: 041
     Dates: start: 20250408, end: 20250417

REACTIONS (1)
  - Hyponatraemia [Unknown]

NARRATIVE: CASE EVENT DATE: 20250417
